FAERS Safety Report 15155706 (Version 1)
Quarter: 2018Q3

REPORT INFORMATION
  Report Type: Spontaneous
  Country: US (occurrence: US)
  Receive Date: 20180717
  Receipt Date: 20180717
  Transmission Date: 20181010
  Serious: Yes (Other)
  Sender: FDA-Public Use
  Company Number: US-MYLANLABS-2018M1052148

PATIENT
  Age: 53 Year
  Sex: Male

DRUGS (3)
  1. BORTEZOMIB. [Suspect]
     Active Substance: BORTEZOMIB
     Indication: GLOMERULONEPHRITIS PROLIFERATIVE
     Dosage: 1.3 MG/M 2 ON DAYS 1, 8 AND 15 (CYCLE LENGTH 28 DAYS, FOR SIX CYCLES ON TWO OCCASIONS)
     Route: 058
  2. DEXAMETHASONE. [Suspect]
     Active Substance: DEXAMETHASONE
     Indication: GLOMERULONEPHRITIS PROLIFERATIVE
     Dosage: 40 MG ON DAYS 1, 8 AND 15 (CYCLE LENGTH 28 DAYS, FOR SIX CYCLES ON TWO OCCASIONS)
     Route: 048
  3. CYCLOPHOSPHAMIDE. [Concomitant]
     Active Substance: CYCLOPHOSPHAMIDE
     Indication: GLOMERULONEPHRITIS PROLIFERATIVE
     Dosage: 600 MG ON DAYS 1, 8 AND 15 (CYCLE LENGTH 28 DAYS, FOR SIX CYCLES ON ONE OCCASION)
     Route: 048

REACTIONS (2)
  - Neuropathy peripheral [Unknown]
  - Gastrointestinal disorder [Unknown]
